FAERS Safety Report 12645623 (Version 1)
Quarter: 2016Q3

REPORT INFORMATION
  Report Type: Report from Study
  Country: US (occurrence: US)
  Receive Date: 20160811
  Receipt Date: 20160811
  Transmission Date: 20161109
  Serious: Yes (Hospitalization, Other)
  Sender: FDA-Public Use
  Company Number: US-ABBVIE-16K-163-1696435-00

PATIENT
  Age: 55 Year
  Sex: Female

DRUGS (1)
  1. HUMIRA [Suspect]
     Active Substance: ADALIMUMAB
     Indication: RHEUMATOID ARTHRITIS
     Route: 058
     Dates: start: 201601

REACTIONS (12)
  - Pain in extremity [Unknown]
  - Headache [Unknown]
  - Neck pain [Unknown]
  - Angioplasty [Unknown]
  - Joint range of motion decreased [Unknown]
  - Insomnia [Unknown]
  - Vomiting [Unknown]
  - Sleep apnoea syndrome [Unknown]
  - Vision blurred [Unknown]
  - Nausea [Unknown]
  - Arthralgia [Unknown]
  - Meningioma [Unknown]

NARRATIVE: CASE EVENT DATE: 2016
